FAERS Safety Report 4262118-6 (Version None)
Quarter: 2004Q1

REPORT INFORMATION
  Report Type: 
  Country: None (occurrence: None)
  Receive Date: 20040102
  Receipt Date: 20030901
  Transmission Date: 20041129
  Serious: Yes (Hospitalization, Disabling)
  Sender: FDA-Public Use
  Company Number: GB-ROCHE-345857

PATIENT
  Age: 57 Year
  Sex: Male
  Weight: 57.3 kg

DRUGS (7)
  1. CAPECITABINE [Suspect]
     Dosage: FOR 14 DAYS FOLLOWED BY 7 DAYS REST
     Route: 048
     Dates: start: 20030530
  2. GEMCITABINE [Suspect]
     Dosage: ON DAYS 1 AND 8 OF A 3 WEEK CYCLE.
     Route: 042
     Dates: start: 20030530
  3. DEXAMETHASONE [Concomitant]
     Indication: NAUSEA
     Route: 042
     Dates: start: 20030808, end: 20030814
  4. CREON [Concomitant]
     Route: 048
  5. LANSOPRAZOLE [Concomitant]
     Route: 048
  6. METOCLOPRAMIDE [Concomitant]
     Indication: NAUSEA
     Route: 048
  7. PREDNISOLONE [Concomitant]
     Route: 048

REACTIONS (4)
  - BLOOD BILIRUBIN INCREASED [None]
  - DEEP VEIN THROMBOSIS [None]
  - JAUNDICE [None]
  - STENT OCCLUSION [None]
